FAERS Safety Report 8545192-8 (Version None)
Quarter: 2012Q3

REPORT INFORMATION
  Report Type: 
  Country: None (occurrence: None)
  Receive Date: 20120727
  Receipt Date: 20120713
  Transmission Date: 20120928
  Serious: Yes (Other)
  Sender: FDA-Public Use
  Company Number: US-PAR PHARMACEUTICAL, INC-2012SCPR004502

PATIENT

DRUGS (2)
  1. CALCITONIN SALMON [Suspect]
     Indication: OSTEOPOROSIS
     Dosage: ONE SPRAY ONCE A DAY IN ALTERNATE NOSTRIL
     Route: 045
     Dates: start: 20120703, end: 20120705
  2. THYROID TAB [Concomitant]
     Indication: PRODUCT USED FOR UNKNOWN INDICATION
     Dosage: UNK, UNKNOWN
     Route: 065

REACTIONS (13)
  - FATIGUE [None]
  - INSOMNIA [None]
  - NAUSEA [None]
  - TINNITUS [None]
  - ADMINISTRATION SITE RASH [None]
  - CONSTIPATION [None]
  - NASAL DISCOMFORT [None]
  - RESPIRATORY DISORDER [None]
  - THIRST [None]
  - DYSPNOEA [None]
  - PRURITUS [None]
  - MUSCULOSKELETAL STIFFNESS [None]
  - DRY MOUTH [None]
